FAERS Safety Report 8587134-5 (Version None)
Quarter: 2012Q3

REPORT INFORMATION
  Report Type: 
  Country: None (occurrence: None)
  Receive Date: 20120810
  Receipt Date: 20120801
  Transmission Date: 20120928
  Serious: Yes (Hospitalization)
  Sender: FDA-Public Use
  Company Number: -VALEANT-2012VX003603

PATIENT
  Age: 47 Year
  Sex: Male

DRUGS (4)
  1. CLOZAPINE [Concomitant]
     Indication: PARKINSON'S DISEASE
     Route: 048
  2. TASMAR [Suspect]
     Indication: PARKINSON'S DISEASE
     Route: 048
     Dates: start: 20120501, end: 20120601
  3. MODOPAR [Concomitant]
     Indication: PARKINSON'S DISEASE
     Route: 048
     Dates: start: 20060101
  4. REQUIP [Concomitant]
     Indication: PARKINSON'S DISEASE
     Route: 048
     Dates: start: 20060101

REACTIONS (1)
  - VOLVULUS [None]
